FAERS Safety Report 5955181-5 (Version None)
Quarter: 2008Q4

REPORT INFORMATION
  Report Type: 
  Country: None (occurrence: None)
  Receive Date: 20081117
  Receipt Date: 20081105
  Transmission Date: 20090506
  Serious: Yes (Hospitalization)
  Sender: FDA-Public Use
  Company Number: US-BIOGENIDEC-2008BI002821

PATIENT
  Age: 44 Year
  Sex: Female
  Weight: 49 kg

DRUGS (4)
  1. TYSABRI [Suspect]
     Indication: MULTIPLE SCLEROSIS
     Route: 042
     Dates: start: 20070912
  2. BACLOFEN [Concomitant]
     Indication: DRUG USE FOR UNKNOWN INDICATION
     Dates: start: 20070101
  3. NEURONTIN [Concomitant]
     Indication: RESTLESS LEGS SYNDROME
  4. PROVIGIL [Concomitant]
     Indication: DRUG USE FOR UNKNOWN INDICATION
     Dates: start: 20070101

REACTIONS (3)
  - DRUG HYPERSENSITIVITY [None]
  - OVARIAN CANCER [None]
  - UTERINE LEIOMYOMA [None]
